FAERS Safety Report 23391004 (Version 2)
Quarter: 2024Q1

REPORT INFORMATION
  Report Type: Report from Study
  Country: US (occurrence: None)
  Receive Date: 20240111
  Receipt Date: 20240223
  Transmission Date: 20240410
  Serious: Yes (Other)
  Sender: FDA-Public Use
  Company Number: 2024A002352

PATIENT
  Sex: Male

DRUGS (1)
  1. FASENRA [Suspect]
     Active Substance: BENRALIZUMAB
     Route: 058

REACTIONS (6)
  - Blood pressure increased [Unknown]
  - Dyspnoea exertional [Unknown]
  - Fatigue [Unknown]
  - Heart rate increased [Unknown]
  - Dizziness [Unknown]
  - Injection site joint pain [Recovered/Resolved]
